FAERS Safety Report 7302898-6 (Version None)
Quarter: 2011Q1

REPORT INFORMATION
  Report Type: 
  Country: None (occurrence: None)
  Receive Date: 20110218
  Receipt Date: 20110210
  Transmission Date: 20110831
  Serious: Yes (Other)
  Sender: FDA-Public Use
  Company Number: CA-MERCK-1102USA01324

PATIENT
  Age: 65 Year
  Sex: Female

DRUGS (3)
  1. ZOCOR [Suspect]
     Route: 048
  2. ZOCOR [Suspect]
     Route: 048
  3. SYNTHROID [Concomitant]
     Route: 048

REACTIONS (4)
  - NERVE INJURY [None]
  - HYPOAESTHESIA [None]
  - POOR PERIPHERAL CIRCULATION [None]
  - MUSCLE SPASMS [None]
